FAERS Safety Report 11115218 (Version 1)
Quarter: 2015Q2

REPORT INFORMATION
  Report Type: Spontaneous
  Country: US (occurrence: None)
  Receive Date: 20150513
  Receipt Date: 20150513
  Transmission Date: 20150821
  Serious: Yes (Life-Threatening, Hospitalization)
  Sender: FDA-Public Use
  Company Number: 200033550

PATIENT
  Sex: Female

DRUGS (2)
  1. PURELAX POLYETHYLENE GLYCOL 3350 POWDER FOR SOLUTION OSMOTIC LAXATIVE [Concomitant]
  2. MAGNESIUM CITRATE. [Suspect]
     Active Substance: MAGNESIUM CITRATE
     Indication: CONSTIPATION
     Dosage: 10 FL OZ IN 24 HOURS?APPROX. 1 DAY

REACTIONS (3)
  - Blood sodium decreased [None]
  - Seizure [None]
  - No therapeutic response [None]

NARRATIVE: CASE EVENT DATE: 20150125
